FAERS Safety Report 6052474-0 (Version None)
Quarter: 2009Q1

REPORT INFORMATION
  Report Type: 
  Country: None (occurrence: None)
  Receive Date: 20090121
  Receipt Date: 20090108
  Transmission Date: 20090719
  Serious: Yes (Hospitalization)
  Sender: FDA-Public Use
  Company Number: 039684

PATIENT
  Age: 64 Year
  Sex: Female

DRUGS (3)
  1. CIPROFLOXACIN [Suspect]
     Indication: URINARY TRACT INFECTION
  2. CLOZAPINE [Suspect]
     Indication: INFECTION
  3. CLOZAPINE [Suspect]
     Indication: SCHIZOAFFECTIVE DISORDER

REACTIONS (13)
  - CARDIOMYOPATHY [None]
  - CONFUSIONAL STATE [None]
  - DELIRIUM [None]
  - DRUG INTERACTION [None]
  - DRUG TOXICITY [None]
  - HYPOTENSION [None]
  - IRRITABILITY [None]
  - MYOCARDITIS [None]
  - PERIPHERAL COLDNESS [None]
  - PSYCHOTIC DISORDER [None]
  - SOMNOLENCE [None]
  - TOBACCO INTERACTION [None]
  - UROSEPSIS [None]
